FAERS Safety Report 6111133-6 (Version None)
Quarter: 2009Q1

REPORT INFORMATION
  Report Type: 
  Country: None (occurrence: None)
  Receive Date: 20090309
  Receipt Date: 20090224
  Transmission Date: 20090719
  Serious: Yes (Other)
  Sender: FDA-Public Use
  Company Number: GXKR2009GB02361

PATIENT
  Age: 39 Year
  Weight: 96 kg

DRUGS (2)
  1. OMEPRAZOLE [Suspect]
     Indication: ABDOMINAL PAIN
     Dosage: ORAL
     Route: 048
     Dates: start: 20070301
  2. FAMOTIDINE [Concomitant]

REACTIONS (2)
  - FLUSHING [None]
  - LIVER FUNCTION TEST ABNORMAL [None]
